FAERS Safety Report 7578137-8 (Version None)
Quarter: 2011Q2

REPORT INFORMATION
  Report Type: 
  Country: None (occurrence: None)
  Receive Date: 20110628
  Receipt Date: 20110607
  Transmission Date: 20111010
  Serious: Yes (Hospitalization)
  Sender: FDA-Public Use
  Company Number: A0870730A

PATIENT
  Age: 57 Year
  Sex: Male
  Weight: 109.1 kg

DRUGS (2)
  1. GLUCOPHAGE [Concomitant]
  2. AVANDIA [Suspect]
     Route: 048
     Dates: start: 20001001, end: 20070501

REACTIONS (5)
  - CEREBRAL INFARCTION [None]
  - CEREBROVASCULAR ACCIDENT [None]
  - CARDIAC FAILURE CONGESTIVE [None]
  - CORONARY ARTERY DISEASE [None]
  - CONGESTIVE CARDIOMYOPATHY [None]
